FAERS Safety Report 5349867-3 (Version None)
Quarter: 2007Q2

REPORT INFORMATION
  Report Type: 
  Country: None (occurrence: None)
  Receive Date: 20070607
  Receipt Date: 20070601
  Transmission Date: 20071010
  Serious: Yes (Other)
  Sender: FDA-Public Use
  Company Number: DE-BOEHRINGER INGELHEIM PHARMACEUTICALS, INC.-2007-BE-00043BE

PATIENT

DRUGS (1)
  1. MICARDISPLUS 40/12,5 MG TABLETTEN [Suspect]

REACTIONS (3)
  - LOSS OF CONSCIOUSNESS [None]
  - NARCOLEPSY [None]
  - SYNCOPE [None]
